FAERS Safety Report 13427065 (Version 1)
Quarter: 2017Q2

REPORT INFORMATION
  Report Type: Spontaneous
  Country: US (occurrence: US)
  Receive Date: 20170411
  Receipt Date: 20170411
  Transmission Date: 20170830
  Serious: Yes (Life-Threatening, Hospitalization)
  Sender: FDA-Public Use
  Company Number: None

PATIENT
  Age: 65 Year
  Sex: Female
  Weight: 94.05 kg

DRUGS (1)
  1. MULTIHANCE [Suspect]
     Active Substance: GADOBENATE DIMEGLUMINE
     Indication: PANCREATIC PSEUDOCYST
     Route: 042
     Dates: start: 20170410, end: 20170410

REACTIONS (4)
  - Heart rate decreased [None]
  - Mouth haemorrhage [None]
  - Cardio-respiratory arrest [None]
  - Chest pain [None]

NARRATIVE: CASE EVENT DATE: 20170410
